FAERS Safety Report 15279558 (Version 1)
Quarter: 2018Q3

REPORT INFORMATION
  Report Type: Spontaneous
  Country: US (occurrence: US)
  Receive Date: 20180815
  Receipt Date: 20180815
  Transmission Date: 20181010
  Serious: No
  Sender: FDA-Public Use
  Company Number: US-PFIZER INC-2018326398

PATIENT
  Age: 65 Year
  Sex: Female
  Weight: 86.18 kg

DRUGS (3)
  1. MEROPENEM. [Suspect]
     Active Substance: MEROPENEM
     Indication: SEPSIS
     Dosage: 1000MG/100ML INFUSED AT A RATE 33.33 ML/HR OVER 3 HOURS EXTENDED INFUSION
     Route: 042
     Dates: start: 20180720, end: 20180724
  2. MEROPENEM. [Suspect]
     Active Substance: MEROPENEM
     Indication: URINARY TRACT INFECTION
  3. MEROPENEM. [Suspect]
     Active Substance: MEROPENEM
     Indication: KIDNEY INFECTION

REACTIONS (6)
  - Tremor [Unknown]
  - Oral herpes [Unknown]
  - White blood cell count increased [Unknown]
  - Candida infection [Unknown]
  - Pyrexia [Unknown]
  - Lip swelling [Unknown]

NARRATIVE: CASE EVENT DATE: 20180721
